FAERS Safety Report 9451626 (Version 1)
Quarter: 2013Q3

REPORT INFORMATION
  Report Type: Spontaneous
  Country: DE (occurrence: DE)
  Receive Date: 20130811
  Receipt Date: 20130811
  Transmission Date: 20140515
  Serious: Yes (Hospitalization, Other)
  Sender: FDA-Public Use
  Company Number: DE-009507513-1308DEU000454

PATIENT
  Sex: Female

DRUGS (3)
  1. PEGINTRON [Suspect]
     Indication: CHRONIC HEPATITIS C
     Dosage: TOTAL DAILY DOSE: STANDARD DOSAGE
  2. REBETOL [Suspect]
     Indication: CHRONIC HEPATITIS C
     Dosage: TOTAL DAILY DOSE: STANDARD DOSAGE
     Route: 048
  3. VICTRELIS [Suspect]
     Indication: CHRONIC HEPATITIS C
     Dosage: TOTAL DAILY DOSE: STANDARD DOSAGE
     Route: 048

REACTIONS (4)
  - Aphasia [Unknown]
  - Amnesia [Unknown]
  - Sleep disorder [Unknown]
  - Vision blurred [Unknown]
